FAERS Safety Report 7568633-1 (Version None)
Quarter: 2011Q2

REPORT INFORMATION
  Report Type: 
  Country: None (occurrence: None)
  Receive Date: 20110623
  Receipt Date: 20110608
  Transmission Date: 20111010
  Serious: Yes (Hospitalization, Other)
  Sender: FDA-Public Use
  Company Number: PHHY2011HR50006

PATIENT
  Age: 33 Year
  Sex: Female

DRUGS (6)
  1. FLUPHENAZINE [Suspect]
     Dosage: 2 MG/DAY
  2. QUETIAPINE [Suspect]
  3. DIAZEPAM [Suspect]
     Dosage: 20 MG/DAY
  4. ALPRAZOLAM [Suspect]
     Dosage: 1.5 MG/DAY
  5. FLUVOXAMINE MALEATE [Suspect]
     Dosage: 200 MG/DAY
  6. FLUPHENAZINE [Suspect]
     Dosage: 1 MG/DAY

REACTIONS (21)
  - FLUSHING [None]
  - MEMORY IMPAIRMENT [None]
  - WEIGHT INCREASED [None]
  - BURNOUT SYNDROME [None]
  - CHEST DISCOMFORT [None]
  - TENSION [None]
  - ATTENTION DEFICIT/HYPERACTIVITY DISORDER [None]
  - SCHIZOAFFECTIVE DISORDER [None]
  - SLEEP DISORDER [None]
  - PSYCHOTIC DISORDER [None]
  - WAIST CIRCUMFERENCE INCREASED [None]
  - DISTRACTIBILITY [None]
  - ANXIETY [None]
  - FEELING COLD [None]
  - BACK PAIN [None]
  - IRRITABILITY [None]
  - FEAR OF DEATH [None]
  - FATIGUE [None]
  - MUSCULAR WEAKNESS [None]
  - SOMATISATION DISORDER [None]
  - BODY MASS INDEX INCREASED [None]
